FAERS Safety Report 7629646-4 (Version None)
Quarter: 2011Q3

REPORT INFORMATION
  Report Type: 
  Country: None (occurrence: None)
  Receive Date: 20110722
  Receipt Date: 20110712
  Transmission Date: 20111222
  Serious: Yes (Hospitalization, Other)
  Sender: FDA-Public Use
  Company Number: CA-JNJFOC-20110706310

PATIENT
  Sex: Female
  Weight: 91 kg

DRUGS (9)
  1. QUININE SULFATE [Concomitant]
     Dosage: AT HS
  2. RABEPRAZOLE SODIUM [Concomitant]
  3. RAMIPRIL [Concomitant]
  4. METFORMIN HCL [Concomitant]
  5. AZATHIOPRINE [Concomitant]
  6. NOVORAPID INSULIN [Concomitant]
  7. HYDROCHLOROTHIAZIDE [Concomitant]
  8. LANTUS [Concomitant]
  9. REMICADE [Suspect]
     Indication: CROHN'S DISEASE
     Route: 042
     Dates: start: 20030101

REACTIONS (2)
  - CHOLELITHIASIS [None]
  - GALLBLADDER DISORDER [None]
